FAERS Safety Report 9758637 (Version 1)
Quarter: 2013Q4

REPORT INFORMATION
  Report Type: Spontaneous
  Country: US (occurrence: None)
  Receive Date: 20131213
  Receipt Date: 20131213
  Transmission Date: 20140711
  Serious: Yes (Life-Threatening, Hospitalization)
  Sender: FDA-Public Use
  Company Number: None

PATIENT
  Age: 86 Year
  Sex: Female
  Weight: 48.4 kg

DRUGS (19)
  1. XARELTO [Suspect]
     Indication: ATRIAL FIBRILLATION
     Route: 048
  2. PENTOSAN POLYSULFATE (ELMIRON) [Concomitant]
  3. MAGNESIUM OXIDE [Concomitant]
  4. HYDROXYZINE [Concomitant]
  5. DONEPEZIL [Concomitant]
  6. VERAPAMIL [Concomitant]
  7. ACETAMINOPHEN (TYLENOL) [Concomitant]
  8. OXYBUTYNIN [Concomitant]
  9. OTHER OTHER OTC EYE GEL [Concomitant]
  10. LUVENA VAGINAL MOISTURIZER VA GEL [Concomitant]
  11. B COMPLEX-C-CALCIUM (GNP B-COMPLEX PLUS VITAMIN C) [Concomitant]
  12. NUTRITIONAL SUPPLEMENTS (FIBER FORMULA) [Concomitant]
  13. DOCUSATE SODIUM [Concomitant]
  14. CRANBERRY [Concomitant]
  15. PROBIOTIC PRODUCT (FLORAJEN3) [Concomitant]
  16. HYOSCYAMINE SULFATE [Concomitant]
  17. CALCIUM-VITAMIN D [Concomitant]
  18. SUCRALFATE [Concomitant]
  19. CHOLECALCIFEROL (VITAMIN D-3 SUPER STRENGTH) [Concomitant]

REACTIONS (1)
  - Cerebral haemorrhage [None]
